FAERS Safety Report 7310041-2 (Version None)
Quarter: 2011Q1

REPORT INFORMATION
  Report Type: 
  Country: None (occurrence: None)
  Receive Date: 20110224
  Receipt Date: 20110214
  Transmission Date: 20110831
  Serious: Yes (Hospitalization)
  Sender: FDA-Public Use
  Company Number: PHHO2010DE15139

PATIENT
  Sex: Male
  Weight: 82 kg

DRUGS (11)
  1. BLINDED ENALAPRIL [Suspect]
     Dosage: CODE NOT BROKEN
     Route: 048
     Dates: start: 20100203, end: 20100223
  2. ENALAPRIL MALEATE [Suspect]
     Dosage: CODE NOT BROKEN
     Route: 048
     Dates: start: 20100224, end: 20101227
  3. BLINDED NO TREATMENT RECEIVED [Suspect]
     Dosage: CODE NOT BROKEN
     Route: 048
     Dates: start: 20100203, end: 20100223
  4. BLINDED ALISKIREN [Suspect]
     Dosage: CODE NOT BROKEN
     Route: 048
     Dates: start: 20100203, end: 20100223
  5. ENALAPRIL MALEATE [Suspect]
     Indication: CARDIAC FAILURE
     Dosage: 20 MG, DAILY
     Route: 048
     Dates: start: 20091210, end: 20100202
  6. BLINDED NO TREATMENT RECEIVED [Suspect]
     Dosage: CODE NOT BROKEN
     Route: 048
     Dates: start: 20100224, end: 20101227
  7. BLINDED ALISKIREN [Suspect]
     Dosage: CODE NOT BROKEN
     Route: 048
     Dates: start: 20100224, end: 20101227
  8. ASPIRIN [Concomitant]
     Indication: CORONARY ARTERY DISEASE
     Dosage: 100 MG
     Route: 048
  9. ALISKIREN [Suspect]
     Indication: CARDIAC FAILURE
     Dosage: 300 MG, DAILY
     Route: 048
     Dates: start: 20100111, end: 20100202
  10. METOPROLOL [Concomitant]
     Indication: CARDIAC FAILURE CONGESTIVE
  11. ALLOPURINOL [Concomitant]
     Indication: HYPERURICAEMIA

REACTIONS (12)
  - BLADDER DISORDER [None]
  - URINARY TRACT INFECTION [None]
  - CONCOMITANT DISEASE PROGRESSION [None]
  - PROSTATE CANCER [None]
  - RENAL DISORDER [None]
  - PROSTATECTOMY [None]
  - URETERAL STENT INSERTION [None]
  - CYSTOSTOMY [None]
  - BLADDER CANCER [None]
  - BLADDER GRANULOMA [None]
  - INFLAMMATION [None]
  - BLADDER OPERATION [None]
